FAERS Safety Report 10170226 (Version 1)
Quarter: 2014Q2

REPORT INFORMATION
  Report Type: Report from Study
  Country: CA (occurrence: CA)
  Receive Date: 20140513
  Receipt Date: 20140513
  Transmission Date: 20141212
  Serious: Yes (Hospitalization, Other)
  Sender: FDA-Public Use
  Company Number: CA-JNJFOC-20140504754

PATIENT
  Sex: Female

DRUGS (1)
  1. REMICADE [Suspect]
     Indication: RHEUMATOID ARTHRITIS
     Route: 042
     Dates: end: 201312

REACTIONS (4)
  - Systemic inflammatory response syndrome [Recovering/Resolving]
  - Pericardial effusion [Recovering/Resolving]
  - Brain oedema [Recovering/Resolving]
  - Neuralgia [Recovering/Resolving]
